FAERS Safety Report 5763949-3 (Version None)
Quarter: 2008Q2

REPORT INFORMATION
  Report Type: 
  Country: None (occurrence: None)
  Receive Date: 20080609
  Receipt Date: 20080609
  Transmission Date: 20081010
  Serious: Yes (Death)
  Sender: FDA-Public Use
  Company Number: None

PATIENT
  Age: 85 Year
  Sex: Female
  Weight: 65.7716 kg

DRUGS (1)
  1. DIGITEK .125MG AMIDE -BERTEK- [Suspect]
     Indication: HEART RATE IRREGULAR
     Dosage: 1 DAILY PO
     Route: 048
     Dates: start: 20040101, end: 20080427

REACTIONS (4)
  - FATIGUE [None]
  - NAUSEA [None]
  - ROAD TRAFFIC ACCIDENT [None]
  - VOMITING [None]
